FAERS Safety Report 6909601-X (Version None)
Quarter: 2010Q3

REPORT INFORMATION
  Report Type: 
  Country: None (occurrence: None)
  Receive Date: 20100805
  Receipt Date: 20100728
  Transmission Date: 20110219
  Serious: Yes (Other)
  Sender: FDA-Public Use
  Company Number: JP-ELI_LILLY_AND_COMPANY-JP201008000045

PATIENT
  Age: 67 Year
  Sex: Male

DRUGS (2)
  1. GEMZAR [Suspect]
     Indication: PANCREATIC CARCINOMA STAGE IV
     Dosage: 1000 MG, OTHER
     Route: 042
  2. TS 1 /JPN/ [Concomitant]
     Indication: PANCREATIC CARCINOMA STAGE IV
     Dosage: 100 MG, OTHER
     Route: 048

REACTIONS (2)
  - GASTRIC ULCER HAEMORRHAGE [None]
  - NEUTROPHIL COUNT DECREASED [None]
